FAERS Safety Report 4884750-9 (Version None)
Quarter: 2005Q4

REPORT INFORMATION
  Report Type: 
  Country: None (occurrence: None)
  Receive Date: 20051201
  Receipt Date: 20050919
  Transmission Date: 20060501
  Serious: No
  Sender: FDA-Public Use
  Company Number: 2005PV002442

PATIENT
  Sex: Female

DRUGS (2)
  1. BYETTA [Suspect]
     Dosage: 5 MCG; BID; 5 MCG; QD : SC
     Route: 058
     Dates: start: 20050819, end: 20050901
  2. BYETTA [Suspect]
     Dosage: 5 MCG; BID; 5 MCG; QD : SC
     Route: 058
     Dates: start: 20050901

REACTIONS (1)
  - GASTROOESOPHAGEAL REFLUX DISEASE [None]
